FAERS Safety Report 7306125-5 (Version None)
Quarter: 2011Q1

REPORT INFORMATION
  Report Type: 
  Country: None (occurrence: None)
  Receive Date: 20110210
  Receipt Date: 20110201
  Transmission Date: 20110831
  Serious: Yes (Life-Threatening, Hospitalization)
  Sender: FDA-Public Use
  Company Number: 2010SA052366

PATIENT
  Age: 48 Year
  Sex: Female

DRUGS (4)
  1. SITAGLIPTIN PHOSPHATE (SITAGLIPTIN PHOSPHATE) [Suspect]
     Indication: TYPE 2 DIABETES MELLITUS
     Dosage: 100 MILLIGRAM(S), CAPSULE; ORAL; DAILY
     Route: 048
     Dates: start: 20100420
  2. ASPIRINE (ACETYLSALICYLIC AICD) [Concomitant]
  3. LOSARTAN (LOSATAN POTASSIUM) [Concomitant]
  4. HYDROCHLOROTHIAZIDE [Concomitant]

REACTIONS (2)
  - ANAEMIA [None]
  - ABSCESS LIMB [None]
